FAERS Safety Report 10726443 (Version 2)
Quarter: 2015Q1

REPORT INFORMATION
  Report Type: Spontaneous
  Country: CH (occurrence: CH)
  Receive Date: 20150121
  Receipt Date: 20150123
  Transmission Date: 20150721
  Serious: Yes (Death, Other)
  Sender: FDA-Public Use
  Company Number: PHHY2015CH006150

PATIENT
  Sex: Male

DRUGS (2)
  1. SIGNIFOR [Suspect]
     Active Substance: PASIREOTIDE
     Indication: HYPOGLYCAEMIA
  2. SIGNIFOR [Suspect]
     Active Substance: PASIREOTIDE
     Indication: INSULINOMA
     Dosage: 0.9 MG, QD
     Route: 058
     Dates: start: 201412

REACTIONS (5)
  - Multi-organ failure [Fatal]
  - Post procedural complication [Fatal]
  - Product use issue [Unknown]
  - Inflammation [Fatal]
  - Sepsis [Fatal]
